FAERS Safety Report 7099744-5 (Version None)
Quarter: 2010Q4

REPORT INFORMATION
  Report Type: 
  Country: None (occurrence: None)
  Receive Date: 20101112
  Receipt Date: 20101108
  Transmission Date: 20110411
  Serious: Yes (Death, Life-Threatening, Other)
  Sender: FDA-Public Use
  Company Number: US-ASTRAZENECA-2010SE44913

PATIENT
  Age: 6 Year
  Sex: Male

DRUGS (6)
  1. SYMBICORT [Suspect]
     Dosage: 80/4.5 UG DAILY
     Route: 055
  2. PULMICORT [Suspect]
     Route: 055
     Dates: end: 20100825
  3. ADVAIR DISKUS 100/50 [Concomitant]
     Dosage: 250/20 BID
     Dates: end: 20100825
  4. SINGULAIR [Concomitant]
  5. ALBUTEROL [Concomitant]
  6. PREVACID [Concomitant]

REACTIONS (10)
  - ASPIRATION [None]
  - ASTHMA [None]
  - CHOKING [None]
  - CONVULSION [None]
  - DYSPNOEA [None]
  - RETCHING [None]
  - SYNCOPE [None]
  - TREATMENT NONCOMPLIANCE [None]
  - VOMITING [None]
  - WHEEZING [None]
